FAERS Safety Report 17073913 (Version 1)
Quarter: 2019Q4

REPORT INFORMATION
  Report Type: Spontaneous
  Country: US (occurrence: US)
  Receive Date: 20191126
  Receipt Date: 20191126
  Transmission Date: 20200122
  Serious: Yes (Other)
  Sender: FDA-Public Use
  Company Number: US-HIKMA PHARMACEUTICALS USA INC.-US-H14001-19-49912

PATIENT
  Age: 25 Year
  Sex: Male

DRUGS (1)
  1. FENTANYL. [Suspect]
     Active Substance: FENTANYL
     Indication: PRODUCT USED FOR UNKNOWN INDICATION
     Route: 042

REACTIONS (8)
  - Emotional distress [Recovered/Resolved]
  - Hepatic enzyme increased [Recovered/Resolved]
  - Drug abuse [Unknown]
  - Sinus tachycardia [Unknown]
  - Amnestic disorder [Unknown]
  - Leukocytosis [Recovered/Resolved]
  - Vomiting [Unknown]
  - Disorientation [Recovered/Resolved]
